FAERS Safety Report 10271437 (Version 1)
Quarter: 2014Q3

REPORT INFORMATION
  Report Type: Spontaneous
  Country: DE (occurrence: DE)
  Receive Date: 20140701
  Receipt Date: 20140701
  Transmission Date: 20150326
  Serious: Yes (Congenital Anomaly)
  Sender: FDA-Public Use
  Company Number: DE-ASTRAZENECA-2014SE45938

PATIENT
  Sex: Male
  Weight: 3.6 kg

DRUGS (5)
  1. ATACAND PLUS [Suspect]
     Active Substance: CANDESARTAN CILEXETIL\HYDROCHLOROTHIAZIDE
     Indication: HYPERTENSION
     Dosage: 8/12.5 MG, DAILY
     Route: 064
  2. ANTIBIOTICS [Concomitant]
     Active Substance: UNSPECIFIED INGREDIENT
     Indication: VAGINAL INFECTION
     Route: 064
  3. PRESINOL [Concomitant]
     Active Substance: METHYLDOPA
     Indication: HYPERTENSION
     Route: 064
  4. FOLIO [Concomitant]
     Active Substance: FOLIC ACID
     Indication: PROPHYLAXIS OF NEURAL TUBE DEFECT
     Route: 064
  5. GRIPPEIMPFSTOFF [Concomitant]
     Active Substance: INFLUENZA VIRUS VACCINE
     Indication: IMMUNISATION
     Route: 064

REACTIONS (3)
  - Congenital hydronephrosis [Not Recovered/Not Resolved]
  - Congenital vesicoureteric reflux [Not Recovered/Not Resolved]
  - Ureteric stenosis [Not Recovered/Not Resolved]

NARRATIVE: CASE EVENT DATE: 20131028
